FAERS Safety Report 4439991-1 (Version None)
Quarter: 2004Q3

REPORT INFORMATION
  Report Type: 
  Country: None (occurrence: None)
  Receive Date: 20040831
  Receipt Date: 20040819
  Transmission Date: 20050211
  Serious: Yes (Hospitalization)
  Sender: FDA-Public Use
  Company Number: 208388

PATIENT
  Age: 54 Year
  Sex: Female

DRUGS (6)
  1. HERCEPTIN [Suspect]
     Indication: BREAST CANCER
     Dosage: SEE IMAGE
     Route: 042
     Dates: start: 20040728, end: 20040804
  2. TAXOTERE [Suspect]
     Indication: BREAST CANCER
     Dosage: 90 MG, Q3W, INTRAVENOUS
     Route: 042
  3. CARBOPLATIN [Suspect]
     Dosage: 550 MG, Q3W, INTRAVENOUS
     Route: 042
  4. KYTRIL [Concomitant]
  5. PREDNISONE [Concomitant]
  6. TETRACOSACTIDE (COSYNTROPIN) [Concomitant]

REACTIONS (1)
  - FEBRILE NEUTROPENIA [None]
